FAERS Safety Report 10700691 (Version 1)
Quarter: 2015Q1

REPORT INFORMATION
  Report Type: Other
  Country: FR (occurrence: FR)
  Receive Date: 20150109
  Receipt Date: 20150109
  Transmission Date: 20150721
  Serious: Yes (Hospitalization, Other)
  Sender: FDA-Public Use
  Company Number: FR-MYLANLABS-2015M1000424

PATIENT

DRUGS (5)
  1. XARELTO [Concomitant]
     Active Substance: RIVAROXABAN
     Indication: VENOUS THROMBOSIS
     Dosage: 15 MG, AM
     Dates: start: 20141104
  2. FUCIDINE                           /00065701/ [Concomitant]
     Indication: ERYSIPELAS
     Dosage: 250 MG, TID
     Route: 048
     Dates: start: 20141027, end: 20141103
  3. AERIUS [Concomitant]
     Active Substance: DESLORATADINE
     Indication: DRUG HYPERSENSITIVITY
     Dosage: 1, QD, IN THE EVENING
     Route: 048
     Dates: start: 20141027, end: 20141103
  4. PYOSTACINE [Concomitant]
     Active Substance: PRISTINAMYCIN
     Indication: ERYSIPELAS
     Dosage: 500 MG, TID
     Route: 048
     Dates: start: 20141024, end: 20141027
  5. FONDAPARINUX [Suspect]
     Active Substance: FONDAPARINUX
     Indication: VENOUS THROMBOSIS
     Dosage: 7.5 MG, QD AT NOON
     Route: 058
     Dates: start: 20141024, end: 20141103

REACTIONS (3)
  - Musculoskeletal pain [Unknown]
  - Haemorrhagic anaemia [Unknown]
  - Haematoma [Unknown]

NARRATIVE: CASE EVENT DATE: 20141103
